FAERS Safety Report 11938272 (Version 1)
Quarter: 2016Q1

REPORT INFORMATION
  Report Type: Spontaneous
  Country: US (occurrence: None)
  Receive Date: 20160120
  Receipt Date: 20160120
  Transmission Date: 20160526
  Serious: Yes (Hospitalization)
  Sender: FDA-Public Use
  Company Number: None

PATIENT
  Age: 70 Year
  Sex: Male
  Weight: 110 kg

DRUGS (1)
  1. ETHACRYNIC ACID [Suspect]
     Active Substance: ETHACRYNIC ACID
     Indication: OEDEMA
     Route: 048
     Dates: start: 20151014, end: 20151223

REACTIONS (1)
  - Diarrhoea [None]

NARRATIVE: CASE EVENT DATE: 20151223
